FAERS Safety Report 15406905 (Version 1)
Quarter: 2018Q3

REPORT INFORMATION
  Report Type: Spontaneous
  Country: US (occurrence: US)
  Receive Date: 20180912
  Receipt Date: 20180912
  Transmission Date: 20181010
  Serious: Yes (Hospitalization)
  Sender: FDA-Public Use
  Company Number: None

PATIENT
  Age: 71 Year
  Sex: Female
  Weight: 60 kg

DRUGS (13)
  1. TRASTUZUMAB. [Suspect]
     Active Substance: TRASTUZUMAB
     Dates: start: 20180801
  2. DOXORUBICIN [Concomitant]
     Active Substance: DOXORUBICIN
  3. CYCLOPHOSPHAMIDE. [Concomitant]
     Active Substance: CYCLOPHOSPHAMIDE
  4. NAB?PACLITAXEL [ABRAXANE] [Concomitant]
  5. CARBOPLATIN AUC [Concomitant]
  6. NEULASTA [Concomitant]
     Active Substance: PEGFILGRASTIM
  7. TRASTUZUMAB. [Suspect]
     Active Substance: TRASTUZUMAB
     Indication: BREAST CANCER
     Dates: start: 20180711
  8. PERTUZUMAB. [Suspect]
     Active Substance: PERTUZUMAB
     Dates: start: 20180801
  9. PACLITAXEL. [Concomitant]
     Active Substance: PACLITAXEL
  10. PEGFILGRASTIM [Concomitant]
     Active Substance: PEGFILGRASTIM
  11. PERTUZUMAB. [Suspect]
     Active Substance: PERTUZUMAB
     Dates: start: 20180718
  12. PERTUZUMAB. [Suspect]
     Active Substance: PERTUZUMAB
     Indication: BREAST CANCER
     Route: 042
     Dates: start: 20180711
  13. TAMSULOSIN [Concomitant]
     Active Substance: TAMSULOSIN

REACTIONS (3)
  - Neutropenia [None]
  - Atrial fibrillation [None]
  - Anaemia [None]

NARRATIVE: CASE EVENT DATE: 20180826
